APPROVED DRUG PRODUCT: CLONIDINE HYDROCHLORIDE
Active Ingredient: CLONIDINE HYDROCHLORIDE
Strength: 0.1MG
Dosage Form/Route: TABLET, EXTENDED RELEASE;ORAL
Application: A202983 | Product #001
Applicant: PH HEALTH LTD
Approved: Apr 2, 2014 | RLD: No | RS: No | Type: DISCN